FAERS Safety Report 10337969 (Version 1)
Quarter: 2014Q3

REPORT INFORMATION
  Report Type: Spontaneous
  Country: TR (occurrence: None)
  Receive Date: 20140722
  Receipt Date: 20140722
  Transmission Date: 20150326
  Serious: Yes (Death)
  Sender: FDA-Public Use
  Company Number: 2014TUS006172

PATIENT
  Age: 9 Year
  Sex: Female
  Weight: 30 kg

DRUGS (1)
  1. COLCHICINE (COLCHICINE) TABLET [Suspect]
     Active Substance: COLCHICINE
     Indication: FAMILIAL MEDITERRANEAN FEVER
     Dosage: 30 PILLS
     Route: 048

REACTIONS (10)
  - Toxicity to various agents [None]
  - Atrioventricular block complete [None]
  - Histiocytosis haematophagic [None]
  - Multi-organ failure [None]
  - Hypotension [None]
  - Completed suicide [None]
  - Renal failure [None]
  - Intentional overdose [None]
  - Bone marrow failure [None]
  - Neutrophil Pelger-Huet anomaly present [None]
